FAERS Safety Report 24048813 (Version 8)
Quarter: 2024Q3

REPORT INFORMATION
  Report Type: Spontaneous
  Country: US (occurrence: US)
  Receive Date: 20240704
  Receipt Date: 20240807
  Transmission Date: 20241017
  Serious: Yes (Death)
  Sender: ROCHE
  Company Number: US-ROCHE-10000015128

PATIENT
  Age: 65 Year
  Sex: Female
  Weight: 50.35 kg

DRUGS (2)
  1. ROZLYTREK [Suspect]
     Active Substance: ENTRECTINIB
     Indication: Non-small cell lung cancer
     Route: 065
     Dates: start: 20240528, end: 20240608
  2. ROZLYTREK [Suspect]
     Active Substance: ENTRECTINIB
     Indication: Pneumonia

REACTIONS (4)
  - Death [Fatal]
  - Neuralgia [Recovering/Resolving]
  - Urinary retention [Recovering/Resolving]
  - Weight increased [Unknown]

NARRATIVE: CASE EVENT DATE: 20240708
